FAERS Safety Report 4971511-5 (Version None)
Quarter: 2006Q2

REPORT INFORMATION
  Report Type: 
  Country: None (occurrence: None)
  Receive Date: 20060413
  Receipt Date: 20060405
  Transmission Date: 20061013
  Serious: Yes (Other)
  Sender: FDA-Public Use
  Company Number: JP-JNJFOC-20050802095

PATIENT
  Sex: Male

DRUGS (9)
  1. LEUSTATIN [Suspect]
     Indication: NON-HODGKIN'S LYMPHOMA
     Route: 041
  2. BIAPENEM [Suspect]
  3. G-CSF [Suspect]
     Indication: LEUKOPENIA
  4. VALPROATE SODIUM [Concomitant]
     Indication: EPILEPSY
     Route: 048
  5. CLOBAZAM [Concomitant]
     Indication: EPILEPSY
     Route: 048
  6. FAMOTIDINE [Concomitant]
     Route: 048
  7. SULFAMETHOXAZOLE + TRIMETHOPRIM [Concomitant]
     Route: 048
  8. SULFAMETHOXAZOLE + TRIMETHOPRIM [Concomitant]
     Indication: PROPHYLAXIS
     Route: 048
  9. FLUCONAZOLE [Concomitant]
     Indication: ANTIFUNGAL PROPHYLAXIS
     Route: 048

REACTIONS (6)
  - DIARRHOEA [None]
  - ENCEPHALITIS HERPES [None]
  - ERYTHEMA MULTIFORME [None]
  - HERPES SIMPLEX [None]
  - LEUKOPENIA [None]
  - PYREXIA [None]
